FAERS Safety Report 23896337 (Version 4)
Quarter: 2024Q3

REPORT INFORMATION
  Report Type: Report from Study
  Country: US (occurrence: US)
  Receive Date: 20240524
  Receipt Date: 20240726
  Transmission Date: 20241017
  Serious: Yes (Other)
  Sender: TAKEDA
  Company Number: US-TAKEDA-2024TUS002167

PATIENT
  Sex: Female
  Weight: 62 kg

DRUGS (6)
  1. FRUQUINTINIB [Suspect]
     Active Substance: FRUQUINTINIB
     Indication: Colon cancer
     Dosage: 5 MILLIGRAM
     Route: 048
     Dates: start: 20231222
  2. FRUQUINTINIB [Suspect]
     Active Substance: FRUQUINTINIB
     Dosage: 5 MILLIGRAM
     Route: 048
  3. FRUQUINTINIB [Suspect]
     Active Substance: FRUQUINTINIB
     Dosage: 5 MILLIGRAM, QD
     Route: 048
  4. LEVOTHYROXINE [Concomitant]
     Active Substance: LEVOTHYROXINE\LEVOTHYROXINE SODIUM
     Dosage: UNK
     Route: 065
  5. ELIQUIS [Concomitant]
     Active Substance: APIXABAN
     Dosage: UNK
     Route: 065
  6. AMLODIPINE [Concomitant]
     Active Substance: AMLODIPINE BESYLATE
     Dosage: UNK
     Route: 065

REACTIONS (32)
  - Metastases to adrenals [Unknown]
  - Hypothyroidism [Unknown]
  - Hernia [Unknown]
  - Tooth infection [Unknown]
  - Blood thyroid stimulating hormone increased [Unknown]
  - Blood pressure increased [Unknown]
  - Fatigue [Unknown]
  - Stomatitis [Unknown]
  - Asthenia [Unknown]
  - Tension [Unknown]
  - Lymphadenopathy [Unknown]
  - Swelling face [Unknown]
  - Headache [Unknown]
  - T-lymphocyte count decreased [Unknown]
  - Oral herpes [Unknown]
  - Insomnia [Unknown]
  - Throat tightness [Unknown]
  - Dysphagia [Unknown]
  - Abdominal distension [Unknown]
  - Hypoaesthesia [Unknown]
  - Stomach mass [Unknown]
  - Anxiety [Unknown]
  - Depression [Unknown]
  - Food allergy [Unknown]
  - Blood pressure abnormal [Unknown]
  - Constipation [Unknown]
  - Back pain [Unknown]
  - Dyspnoea [Unknown]
  - Pain in extremity [Unknown]
  - Muscle spasms [Unknown]
  - Neck pain [Unknown]
  - Product use issue [Unknown]
